FAERS Safety Report 4952160-1 (Version None)
Quarter: 2006Q1

REPORT INFORMATION
  Report Type: 
  Country: None (occurrence: None)
  Receive Date: 20060320
  Receipt Date: 20060303
  Transmission Date: 20060701
  Serious: Yes (Death)
  Sender: FDA-Public Use
  Company Number: DSA_27855_2006

PATIENT
  Age: 70 Year
  Sex: Male

DRUGS (1)
  1. ENALAPRIL MALEATE [Suspect]
     Dosage: 20 MG Q DAY PO
     Route: 048
     Dates: start: 19950101, end: 20060208

REACTIONS (4)
  - ABDOMINAL INFECTION [None]
  - DIVERTICULITIS [None]
  - RENAL IMPAIRMENT [None]
  - SLEEP APNOEA SYNDROME [None]
